APPROVED DRUG PRODUCT: METOCLOPRAMIDE HYDROCHLORIDE
Active Ingredient: METOCLOPRAMIDE HYDROCHLORIDE
Strength: EQ 10MG BASE
Dosage Form/Route: TABLET;ORAL
Application: A070342 | Product #001
Applicant: PAR PHARMACEUTICAL INC
Approved: Mar 25, 1986 | RLD: No | RS: No | Type: DISCN